FAERS Safety Report 4999183-4 (Version None)
Quarter: 2006Q2

REPORT INFORMATION
  Report Type: 
  Country: None (occurrence: None)
  Receive Date: 20060509
  Receipt Date: 20060427
  Transmission Date: 20061013
  Serious: Yes (Hospitalization)
  Sender: FDA-Public Use
  Company Number: 2006046613

PATIENT
  Age: 81 Year
  Sex: Female
  Weight: 73.4827 kg

DRUGS (4)
  1. LIPITOR [Suspect]
     Indication: BLOOD CHOLESTEROL
     Dosage: 10 MG (20 MG, 1 IN 1 D)
     Dates: start: 20050101
  2. XANAX [Concomitant]
  3. ZESTRIL [Concomitant]
  4. DIAZIDE (GLICLAZIDE) [Concomitant]

REACTIONS (6)
  - ARTHROPOD BITE [None]
  - HERNIA [None]
  - INSOMNIA [None]
  - RASH PRURITIC [None]
  - STRESS [None]
  - WRONG TECHNIQUE IN DRUG USAGE PROCESS [None]
